FAERS Safety Report 15093279 (Version 1)
Quarter: 2018Q2

REPORT INFORMATION
  Report Type: Spontaneous
  Country: CM (occurrence: CM)
  Receive Date: 20180629
  Receipt Date: 20180629
  Transmission Date: 20180711
  Serious: Yes (Life-Threatening, Hospitalization)
  Sender: FDA-Public Use
  Company Number: CM-MYLANLABS-2018M1046237

PATIENT
  Age: 25 Year
  Sex: Male
  Weight: 65 kg

DRUGS (2)
  1. BUPIVACAINE. [Suspect]
     Active Substance: BUPIVACAINE
     Indication: SPINAL ANAESTHESIA
     Dosage: 3.2 ML
     Route: 065
  2. SODIUM CHLORIDE. [Concomitant]
     Active Substance: SODIUM CHLORIDE
     Indication: PRODUCT USED FOR UNKNOWN INDICATION
     Dosage: 500 ML
     Route: 042

REACTIONS (6)
  - Seizure [Recovered/Resolved]
  - Depressed level of consciousness [Recovered/Resolved]
  - Hypotension [Recovered/Resolved]
  - Bradycardia [Recovered/Resolved]
  - Cardiac arrest [Recovered/Resolved]
  - Dyspnoea [Recovered/Resolved]
